FAERS Safety Report 5660771-3 (Version None)
Quarter: 2008Q1

REPORT INFORMATION
  Report Type: 
  Country: None (occurrence: None)
  Receive Date: 20080311
  Receipt Date: 20080225
  Transmission Date: 20080703
  Serious: Yes (Hospitalization)
  Sender: FDA-Public Use
  Company Number: IT-GENENTECH-255831

PATIENT
  Age: 50 Year
  Sex: Male

DRUGS (1)
  1. RAPTIVA [Suspect]
     Indication: PSORIASIS
     Dosage: 125 MG, 1/WEEK
     Route: 058
     Dates: start: 20070215

REACTIONS (2)
  - DERMATOMYOSITIS [None]
  - MOLLUSCUM CONTAGIOSUM [None]
